FAERS Safety Report 15214725 (Version 1)
Quarter: 2018Q3

REPORT INFORMATION
  Report Type: Spontaneous
  Country: BR (occurrence: BR)
  Receive Date: 20180730
  Receipt Date: 20180730
  Transmission Date: 20181010
  Serious: Yes (Other)
  Sender: FDA-Public Use
  Company Number: BR-GLAXOSMITHKLINE-BR2016GSK181507

PATIENT
  Sex: Female
  Weight: 111 kg

DRUGS (1)
  1. BENLYSTA [Suspect]
     Active Substance: BELIMUMAB
     Indication: SYSTEMIC LUPUS ERYTHEMATOSUS
     Dosage: UNK
     Dates: start: 20161010

REACTIONS (10)
  - Product availability issue [Unknown]
  - Weight decreased [Unknown]
  - Systemic lupus erythematosus [Unknown]
  - Rash vesicular [Unknown]
  - Blister rupture [Unknown]
  - Inappropriate schedule of drug administration [Recovered/Resolved]
  - Acne [Unknown]
  - Inflammation [Unknown]
  - Drug dose omission [Not Recovered/Not Resolved]
  - Induration [Unknown]
